FAERS Safety Report 7319511-4 (Version None)
Quarter: 2011Q1

REPORT INFORMATION
  Report Type: 
  Country: None (occurrence: None)
  Receive Date: 20110228
  Receipt Date: 20100417
  Transmission Date: 20110831
  Serious: No
  Sender: FDA-Public Use
  Company Number: A0856504A

PATIENT
  Sex: Female

DRUGS (1)
  1. LAMOTRIGINE [Suspect]
     Indication: BIPOLAR I DISORDER
     Route: 048

REACTIONS (2)
  - DRUG INTOLERANCE [None]
  - ADVERSE DRUG REACTION [None]
